FAERS Safety Report 9317017 (Version 1)
Quarter: 2013Q2

REPORT INFORMATION
  Report Type: Spontaneous
  Country: US (occurrence: None)
  Receive Date: 20130528
  Receipt Date: 20130528
  Transmission Date: 20140414
  Serious: No
  Sender: FDA-Public Use
  Company Number: None

PATIENT
  Sex: 0

DRUGS (1)
  1. RIZATRIPTAN [Suspect]
     Indication: MIGRAINE
     Route: 048
     Dates: start: 20130407, end: 20130526

REACTIONS (4)
  - Dizziness [None]
  - Fatigue [None]
  - Drug ineffective [None]
  - Product measured potency issue [None]
